FAERS Safety Report 19639800 (Version 1)
Quarter: 2021Q3

REPORT INFORMATION
  Report Type: Spontaneous
  Country: US (occurrence: US)
  Receive Date: 20210729
  Receipt Date: 20210729
  Transmission Date: 20211014
  Serious: No
  Sender: FDA-Public Use
  Company Number: US-PERRIGO-20US019037

PATIENT
  Age: 36 Year
  Sex: Male

DRUGS (2)
  1. SHAMPOOS [Suspect]
     Active Substance: UNSPECIFIED INGREDIENT
     Indication: HAIR INJURY
     Dosage: UNKNOWN, UNKNOWN
     Route: 061
     Dates: start: 201906, end: 202004
  2. MINOXIDIL. [Suspect]
     Active Substance: MINOXIDIL
     Indication: ANDROGENETIC ALOPECIA
     Dosage: UNKNOWN, UNKNOWN
     Route: 061
     Dates: start: 201906, end: 202004

REACTIONS (5)
  - Application site irritation [Unknown]
  - Headache [Unknown]
  - Application site swelling [Unknown]
  - Condition aggravated [Recovering/Resolving]
  - Dyspnoea [Unknown]

NARRATIVE: CASE EVENT DATE: 201906
